FAERS Safety Report 7423910-X (Version None)
Quarter: 2011Q2

REPORT INFORMATION
  Report Type: 
  Country: None (occurrence: None)
  Receive Date: 20110419
  Receipt Date: 20110411
  Transmission Date: 20111010
  Serious: Yes (Hospitalization, Disabling, Congenital Anomaly, Other)
  Sender: FDA-Public Use
  Company Number: A0890557B

PATIENT
  Sex: Female

DRUGS (3)
  1. PRENATAL VITAMINS [Concomitant]
     Route: 064
  2. PROVENTIL [Concomitant]
     Route: 064
  3. ADVAIR HFA [Suspect]
     Indication: ASTHMA
     Dosage: 1PUFF TWICE PER DAY
     Route: 064
     Dates: start: 20000101, end: 20040701

REACTIONS (29)
  - BONE DISORDER [None]
  - OPTIC NERVE DISORDER [None]
  - HIATUS HERNIA [None]
  - SURGERY [None]
  - TALIPES [None]
  - CARDIAC MURMUR [None]
  - DRUG EXPOSURE DURING PREGNANCY [None]
  - CONGENITAL JAW MALFORMATION [None]
  - JOINT RANGE OF MOTION DECREASED [None]
  - HYPERMETROPIA [None]
  - JAUNDICE [None]
  - PROTRUSION TONGUE [None]
  - UPPER RESPIRATORY TRACT INFECTION [None]
  - GLIOSIS [None]
  - SPEECH DISORDER DEVELOPMENTAL [None]
  - MOTOR DYSFUNCTION [None]
  - TOOTH CROWDING [None]
  - CONNECTIVE TISSUE DISORDER [None]
  - COORDINATION ABNORMAL [None]
  - OPTIC DISC DRUSEN [None]
  - SPEECH DISORDER [None]
  - DEVELOPMENTAL DELAY [None]
  - HYPOTONIA [None]
  - SNORING [None]
  - CONVULSION [None]
  - MENTAL RETARDATION [None]
  - PSEUDOPAPILLOEDEMA [None]
  - PNEUMONIA [None]
  - MACROGLOSSIA [None]
